FAERS Safety Report 9857090 (Version 1)
Quarter: 2014Q1

REPORT INFORMATION
  Report Type: Spontaneous
  Country: IN (occurrence: None)
  Receive Date: 20140128
  Receipt Date: 20140128
  Transmission Date: 20141002
  Serious: Yes (Other)
  Sender: FDA-Public Use
  Company Number: 2014P1000113

PATIENT
  Age: 14 Year
  Sex: Male

DRUGS (4)
  1. RIFAMPIN [Suspect]
     Indication: DISSEMINATED TUBERCULOSIS
  2. PYRAZINAMIDE [Suspect]
     Indication: DISSEMINATED TUBERCULOSIS
  3. ISONIAZID [Concomitant]
  4. ETHAMBUTOL [Concomitant]

REACTIONS (1)
  - Hypersensitivity vasculitis [None]
